FAERS Safety Report 12505715 (Version 2)
Quarter: 2016Q3

REPORT INFORMATION
  Report Type: Spontaneous
  Country: JP (occurrence: JP)
  Receive Date: 20160628
  Receipt Date: 20160727
  Transmission Date: 20161109
  Serious: Yes (Death, Hospitalization)
  Sender: FDA-Public Use
  Company Number: JP-BAYER-2016-116246

PATIENT
  Age: 65 Year
  Sex: Female
  Weight: 50 kg

DRUGS (8)
  1. OXYCONTIN [Concomitant]
     Active Substance: OXYCODONE HYDROCHLORIDE
     Dosage: UNK
     Route: 048
  2. STIVARGA [Suspect]
     Active Substance: REGORAFENIB
     Indication: COLORECTAL CANCER
     Dosage: 160 MG, QD
     Route: 048
     Dates: start: 20160526, end: 20160601
  3. LOXOPROFEN SODIUM [Concomitant]
     Active Substance: LOXOPROFEN SODIUM
  4. STIVARGA [Suspect]
     Active Substance: REGORAFENIB
     Indication: HEPATIC CANCER
     Dosage: 120 MG, QD
     Route: 048
     Dates: start: 20160602, end: 20160609
  5. CYTOTEC [Concomitant]
     Active Substance: MISOPROSTOL
     Route: 048
  6. VIVANT [Concomitant]
     Dosage: UNK
     Route: 048
  7. EDIROL [Concomitant]
     Active Substance: ELDECALCITOL
     Dosage: UNK
     Route: 048
  8. OXINORM [OXYCODONE HYDROCHLORIDE] [Concomitant]
     Dosage: UNK
     Route: 048

REACTIONS (6)
  - Organ failure [Fatal]
  - Thrombocytopenia [Fatal]
  - Stomatitis [Unknown]
  - Acidosis [Fatal]
  - Liver disorder [Fatal]
  - Palmar-plantar erythrodysaesthesia syndrome [Unknown]

NARRATIVE: CASE EVENT DATE: 20160604
